FAERS Safety Report 11752558 (Version 1)
Quarter: 2015Q4

REPORT INFORMATION
  Report Type: Spontaneous
  Country: BR (occurrence: BR)
  Receive Date: 20151119
  Receipt Date: 20151119
  Transmission Date: 20160304
  Serious: Yes (Hospitalization, Other)
  Sender: FDA-Public Use
  Company Number: BR-ROCHE-1662271

PATIENT
  Sex: Female

DRUGS (3)
  1. BACTRIM [Suspect]
     Active Substance: SULFAMETHOXAZOLE\TRIMETHOPRIM
     Indication: URINARY TRACT INFECTION
     Dosage: FOR 7 DAYS
     Route: 065
  2. ROCEPHIN [Suspect]
     Active Substance: CEFTRIAXONE SODIUM
     Indication: URINARY TRACT INFECTION
     Route: 065
  3. BACTRIM [Suspect]
     Active Substance: SULFAMETHOXAZOLE\TRIMETHOPRIM
     Dosage: 1 TABLET DAILY FOR 3 MONTHS
     Route: 065

REACTIONS (7)
  - Malaise [Unknown]
  - Feeding disorder [Not Recovered/Not Resolved]
  - Diabetes mellitus [Unknown]
  - Renal disorder [Unknown]
  - Tooth loss [Not Recovered/Not Resolved]
  - Vomiting [Unknown]
  - Nausea [Unknown]
